FAERS Safety Report 17808914 (Version 1)
Quarter: 2020Q2

REPORT INFORMATION
  Report Type: Spontaneous
  Country: US (occurrence: US)
  Receive Date: 20200520
  Receipt Date: 20200520
  Transmission Date: 20200714
  Serious: Yes (Hospitalization)
  Sender: FDA-Public Use
  Company Number: US-MYLANLABS-2020M1049927

PATIENT
  Age: 22 Year
  Sex: Female

DRUGS (6)
  1. VANCOMYCIN [Suspect]
     Active Substance: VANCOMYCIN
     Indication: EVIDENCE BASED TREATMENT
     Dosage: 1 GRAM, TID
     Route: 042
  2. VANCOMYCIN [Interacting]
     Active Substance: VANCOMYCIN
     Indication: ANTIBIOTIC THERAPY
  3. GENTAMICIN. [Interacting]
     Active Substance: GENTAMICIN
     Indication: ANTIBIOTIC THERAPY
  4. TOBRAMYCIN. [Interacting]
     Active Substance: TOBRAMYCIN
     Indication: EVIDENCE BASED TREATMENT
     Dosage: 180 MILLIGRAM, QD
     Route: 042
  5. GENTAMICIN. [Interacting]
     Active Substance: GENTAMICIN
     Indication: EVIDENCE BASED TREATMENT
     Route: 065
  6. TOBRAMYCIN. [Interacting]
     Active Substance: TOBRAMYCIN
     Indication: ANTIBIOTIC THERAPY

REACTIONS (8)
  - Drug interaction [Recovered/Resolved]
  - Acute kidney injury [Recovered/Resolved]
  - Anuria [Recovered/Resolved]
  - Renal tubular necrosis [Recovered/Resolved]
  - Oedema peripheral [Unknown]
  - Nausea [Unknown]
  - Decreased appetite [Unknown]
  - Toxicity to various agents [Recovered/Resolved]
